FAERS Safety Report 5824361-1 (Version None)
Quarter: 2008Q3

REPORT INFORMATION
  Report Type: 
  Country: None (occurrence: None)
  Receive Date: 20080728
  Receipt Date: 20080205
  Transmission Date: 20090109
  Serious: No
  Sender: FDA-Public Use
  Company Number: US-BAYER-200713022BCC

PATIENT
  Age: 60 Year
  Sex: Female
  Weight: 73 kg

DRUGS (8)
  1. ALEVE [Suspect]
     Indication: ARTHRITIS
     Route: 048
     Dates: start: 20070912, end: 20071001
  2. ALBUTEROL [Concomitant]
  3. ALBUTEROL [Concomitant]
  4. FLEXERIL [Concomitant]
  5. HYDROCHLOROTHIAZIDE [Concomitant]
  6. ELAVIL [Concomitant]
  7. VOLTAREN [Concomitant]
  8. ULTRACET [Concomitant]

REACTIONS (1)
  - CHEST PAIN [None]
